FAERS Safety Report 6566441-1 (Version None)
Quarter: 2010Q1

REPORT INFORMATION
  Report Type: 
  Country: None (occurrence: None)
  Receive Date: 20100202
  Receipt Date: 20100121
  Transmission Date: 20100710
  Serious: Yes (Hospitalization, Other)
  Sender: FDA-Public Use
  Company Number: PHHY2009AU53297

PATIENT
  Sex: Male

DRUGS (9)
  1. CLOZARIL [Suspect]
     Dosage: 850 MG, UNK
     Route: 048
     Dates: start: 20050324
  2. ATORVASTATIN [Concomitant]
  3. NORMAX [Concomitant]
     Dosage: 72 U
     Route: 058
  4. NORMAX [Concomitant]
     Dosage: 56 U
  5. NOVORAPID [Concomitant]
     Dosage: 12U MARNE
     Route: 058
  6. METFORMIN HCL [Concomitant]
     Dosage: 500 MG, NOCTE
  7. IRBESARTAN [Concomitant]
     Dosage: 150 MG DAILY
  8. VALPROATE SODIUM [Concomitant]
     Dosage: 1 G, BID
  9. AMISULPRIDE [Concomitant]
     Dosage: 200 MG, BID

REACTIONS (5)
  - ABNORMAL BEHAVIOUR [None]
  - AGGRESSION [None]
  - BLOOD ALKALINE PHOSPHATASE INCREASED [None]
  - BLOOD BILIRUBIN INCREASED [None]
  - GLOBULINS DECREASED [None]
